FAERS Safety Report 6764119-2 (Version None)
Quarter: 2010Q2

REPORT INFORMATION
  Report Type: 
  Country: None (occurrence: None)
  Receive Date: 20100608
  Receipt Date: 20100528
  Transmission Date: 20101027
  Serious: Yes (Death)
  Sender: FDA-Public Use
  Company Number: 2010US001832

PATIENT
  Age: 76 Year
  Sex: Male

DRUGS (3)
  1. AMBISOME [Suspect]
     Indication: MENINGITIS CRYPTOCOCCAL
     Dosage: UNK, IV DRIP
     Route: 041
  2. FLUCONAZOLE [Concomitant]
  3. FLUCYTOSINE (FLUCYTOSINE) [Concomitant]

REACTIONS (3)
  - CARDIAC ARREST [None]
  - SEPTIC SHOCK [None]
  - URINARY TRACT INFECTION [None]
